FAERS Safety Report 9015158 (Version 1)
Quarter: 2013Q1

REPORT INFORMATION
  Report Type: Spontaneous
  Country: US (occurrence: None)
  Receive Date: 20130109
  Receipt Date: 20130109
  Transmission Date: 20140127
  Serious: Yes (Hospitalization, Other)
  Sender: FDA-Public Use
  Company Number: None

PATIENT
  Sex: Male
  Weight: 81.65 kg

DRUGS (1)
  1. ATORVASTATIN 20MG RANBAXY [Suspect]
     Route: 048
     Dates: start: 20121108, end: 20121118

REACTIONS (7)
  - Gastric haemorrhage [None]
  - Large intestinal haemorrhage [None]
  - Haemorrhage [None]
  - Diverticulum [None]
  - Product quality issue [None]
  - Product contamination physical [None]
  - Obstruction [None]
